FAERS Safety Report 23124704 (Version 9)
Quarter: 2025Q4

REPORT INFORMATION
  Report Type: Spontaneous
  Country: CA (occurrence: CA)
  Receive Date: 20231030
  Receipt Date: 20251110
  Transmission Date: 20260117
  Serious: Yes (Other)
  Sender: PFIZER
  Company Number: CA-PFIZER INC-202300289043

PATIENT
  Age: 6 Year
  Sex: Female
  Weight: 18.4 kg

DRUGS (10)
  1. ABRILADA [Suspect]
     Active Substance: ADALIMUMAB-AFZB
     Indication: Crohn^s disease
     Dosage: 20 MG, EVERY 2 WEEK (INDUCTION 80MG WEEK 0, 40 MG WEEK 2 THEN 20 MG EVERY 2 WEEKS)
     Route: 058
     Dates: start: 20230903
  2. ABRILADA [Suspect]
     Active Substance: ADALIMUMAB-AFZB
     Dosage: 20 MG, EVERY 2 WEEK (INDUCTION 80MG WEEK 0, 40 MG WEEK 2 THEN 20 MG EVERY 2 WEEKS)
     Route: 058
     Dates: start: 20231001
  3. ABRILADA [Suspect]
     Active Substance: ADALIMUMAB-AFZB
     Dosage: 20 MG, EVERY 2 WEEK (INDUCTION 80MG WEEK 0, 40 MG WEEK 2 THEN 20 MG EVERY 2 WEEKS)
     Route: 058
     Dates: start: 20231015
  4. ABRILADA [Suspect]
     Active Substance: ADALIMUMAB-AFZB
     Dosage: 20 MG, INDUCTION 80MG WEEK 0, 40 MG WEEK 2 THEN 20 MG EVERY 2 WEEKS. PREFILLED SYRINGE
     Route: 058
     Dates: start: 20230903
  5. ABRILADA [Suspect]
     Active Substance: ADALIMUMAB-AFZB
     Dosage: 40 MG, EVERY 2 WEEKS PREFILLED SYRINGE
     Route: 058
  6. ABRILADA [Suspect]
     Active Substance: ADALIMUMAB-AFZB
     Dosage: 20 MG, EVERY 2 WEEKS
     Route: 058
     Dates: start: 202504
  7. ABRILADA [Suspect]
     Active Substance: ADALIMUMAB-AFZB
     Dosage: 20 MG, WEEKLY
     Route: 058
  8. ABRILADA [Suspect]
     Active Substance: ADALIMUMAB-AFZB
     Dosage: 20 MG,EVERY 10 DAYS
     Route: 058
  9. PENTASA [Concomitant]
     Active Substance: MESALAMINE
     Dosage: 1 DF
  10. PREDNISONE [Concomitant]
     Active Substance: PREDNISONE
     Dosage: 1 DF

REACTIONS (11)
  - Rectal haemorrhage [Not Recovered/Not Resolved]
  - Haematochezia [Recovering/Resolving]
  - Drug level increased [Unknown]
  - Therapeutic response shortened [Unknown]
  - Treatment failure [Unknown]
  - Nasopharyngitis [Not Recovered/Not Resolved]
  - Condition aggravated [Not Recovered/Not Resolved]
  - Cough [Not Recovered/Not Resolved]
  - Abdominal pain upper [Not Recovered/Not Resolved]
  - Pyrexia [Not Recovered/Not Resolved]
  - Off label use [Unknown]

NARRATIVE: CASE EVENT DATE: 20230101
